FAERS Safety Report 5404667-0 (Version None)
Quarter: 2007Q3

REPORT INFORMATION
  Report Type: 
  Country: None (occurrence: None)
  Receive Date: 20070731
  Receipt Date: 20070720
  Transmission Date: 20080115
  Serious: Yes (Disabling)
  Sender: FDA-Public Use
  Company Number: 2007-161206-NL

PATIENT
  Age: 25 Year
  Sex: Male

DRUGS (4)
  1. DEXAMETHASONE 0.5MG TAB [Suspect]
     Indication: PROPHYLAXIS OF NAUSEA AND VOMITING
     Dosage: ORAL
     Route: 048
  2. BLEOMYCIN [Suspect]
     Indication: TESTIS CANCER
  3. CISPLATIN [Suspect]
     Indication: TESTIS CANCER
  4. ETOPOSIDE [Suspect]
     Indication: TESTIS CANCER

REACTIONS (7)
  - ARTHRALGIA [None]
  - BONE SWELLING [None]
  - GAIT DISTURBANCE [None]
  - GROIN PAIN [None]
  - MOBILITY DECREASED [None]
  - NO THERAPEUTIC RESPONSE [None]
  - OSTEONECROSIS [None]
